FAERS Safety Report 21670914 (Version 1)
Quarter: 2022Q4

REPORT INFORMATION
  Report Type: Spontaneous
  Country: CN (occurrence: CN)
  Receive Date: 20221202
  Receipt Date: 20221202
  Transmission Date: 20230112
  Serious: Yes (Hospitalization, Other)
  Sender: FDA-Public Use
  Company Number: CN-SUN PHARMACEUTICAL INDUSTRIES LTD-2022R1-366742

PATIENT
  Age: 55 Year
  Sex: Male

DRUGS (3)
  1. MYCOPHENOLATE MOFETIL [Suspect]
     Active Substance: MYCOPHENOLATE MOFETIL
     Indication: Immunosuppression
     Dosage: 0.5 GRAM, EVERY 12 HOURS
     Route: 065
     Dates: start: 201903, end: 20190626
  2. PREDNISONE [Suspect]
     Active Substance: PREDNISONE
     Indication: Immunosuppression
     Dosage: 30 MILLIGRAM, QD
     Route: 065
     Dates: start: 201903, end: 20190626
  3. TACROLIMUS [Suspect]
     Active Substance: TACROLIMUS
     Indication: Immunosuppression
     Dosage: 3 MILLIGRAM, EVERY 12 HOURS
     Route: 065
     Dates: start: 201903, end: 20190626

REACTIONS (7)
  - Penicillium infection [Recovering/Resolving]
  - Human polyomavirus infection [Recovering/Resolving]
  - Cytomegalovirus test positive [Recovering/Resolving]
  - Acinetobacter infection [Recovering/Resolving]
  - Pneumonia [Recovering/Resolving]
  - Respiratory failure [Recovering/Resolving]
  - Acute respiratory distress syndrome [Recovering/Resolving]
